FAERS Safety Report 10070733 (Version 1)
Quarter: 2014Q2

REPORT INFORMATION
  Report Type: Spontaneous
  Country: US (occurrence: US)
  Receive Date: 20140410
  Receipt Date: 20140410
  Transmission Date: 20141212
  Serious: Yes (Other)
  Sender: FDA-Public Use
  Company Number: US-JNJFOC-20140404647

PATIENT
  Sex: Female
  Weight: 89.36 kg

DRUGS (6)
  1. SIMPONI ARIA [Suspect]
     Indication: RHEUMATOID ARTHRITIS
     Route: 042
     Dates: start: 20140402
  2. SIMPONI ARIA [Suspect]
     Indication: RHEUMATOID ARTHRITIS
     Route: 042
     Dates: start: 2014
  3. REMICADE [Suspect]
     Indication: RHEUMATOID ARTHRITIS
     Dosage: START DATE: 3 YEARS PRIOR TO THE DATE OF THIS REPORT
     Route: 042
  4. LISINOPRIL [Concomitant]
     Indication: BLOOD PRESSURE
     Route: 065
  5. HYDROCHLOROTHIAZIDE [Concomitant]
     Indication: BLOOD PRESSURE
     Route: 065
  6. PREDNISONE [Concomitant]
     Route: 065

REACTIONS (2)
  - Abscess [Not Recovered/Not Resolved]
  - Myalgia [Not Recovered/Not Resolved]
